FAERS Safety Report 20058218 (Version 1)
Quarter: 2021Q4

REPORT INFORMATION
  Report Type: Spontaneous
  Country: US (occurrence: None)
  Receive Date: 20211111
  Receipt Date: 20211111
  Transmission Date: 20220304
  Serious: No
  Sender: FDA-Public Use
  Company Number: None

PATIENT
  Age: 62 Year
  Sex: Female
  Weight: 78.75 kg

DRUGS (1)
  1. SIMPONI [Suspect]
     Active Substance: GOLIMUMAB
     Indication: Psoriatic arthropathy
     Dosage: OTHER FREQUENCY : MONTHLY;?
     Route: 058
     Dates: start: 20210709, end: 20211109

REACTIONS (5)
  - Pruritus [None]
  - Pharyngeal erythema [None]
  - Throat irritation [None]
  - Dermatomyositis [None]
  - Skin burning sensation [None]

NARRATIVE: CASE EVENT DATE: 20211104
